FAERS Safety Report 13085354 (Version 1)
Quarter: 2017Q1

REPORT INFORMATION
  Report Type: Spontaneous
  Country: US (occurrence: US)
  Receive Date: 20170104
  Receipt Date: 20170104
  Transmission Date: 20170428
  Serious: Yes (Death, Hospitalization)
  Sender: FDA-Public Use
  Company Number: US-JNJFOC-20170100186

PATIENT
  Age: 16 Year
  Sex: Female

DRUGS (5)
  1. ARIPIPRAZOLE. [Suspect]
     Active Substance: ARIPIPRAZOLE
     Indication: COMPLETED SUICIDE
     Route: 065
  2. RISPERIDONE. [Suspect]
     Active Substance: RISPERIDONE
     Indication: SUICIDE ATTEMPT
     Route: 048
  3. CHLORPHENIRAMINE. [Suspect]
     Active Substance: CHLORPHENIRAMINE
     Indication: COMPLETED SUICIDE
     Route: 065
  4. DOXEPIN [Suspect]
     Active Substance: DOXEPIN
     Indication: COMPLETED SUICIDE
     Route: 065
  5. ALCOHOL. [Suspect]
     Active Substance: ALCOHOL
     Indication: COMPLETED SUICIDE
     Route: 065

REACTIONS (1)
  - Toxicity to various agents [Fatal]
